FAERS Safety Report 15245385 (Version 1)
Quarter: 2018Q4

REPORT INFORMATION
  Report Type: Spontaneous
  Country: US (occurrence: US)
  Receive Date: 20180806
  Receipt Date: 20180806
  Transmission Date: 20190204
  Serious: Yes (Other)
  Sender: FDA-Public Use
  Company Number: US-HYGENIC CORPORATION-2053305

PATIENT
  Sex: Female

DRUGS (1)
  1. BIOFREEZE ROLL-ON [Suspect]
     Active Substance: MENTHOL
     Route: 061
     Dates: start: 20180705

REACTIONS (1)
  - Application site burn [Recovering/Resolving]

NARRATIVE: CASE EVENT DATE: 20180705
